FAERS Safety Report 21951819 (Version 5)
Quarter: 2024Q1

REPORT INFORMATION
  Report Type: Spontaneous
  Country: US (occurrence: US)
  Receive Date: 20230203
  Receipt Date: 20240109
  Transmission Date: 20240409
  Serious: Yes (Other)
  Sender: FDA-Public Use
  Company Number: US-PFIZER INC-PV202300020575

PATIENT
  Age: 78 Year
  Sex: Female

DRUGS (1)
  1. VYNDAMAX [Suspect]
     Active Substance: TAFAMIDIS
     Indication: Acquired ATTR amyloidosis
     Dosage: 61 MG

REACTIONS (9)
  - Cardiac fibroma [Unknown]
  - Cataract [Unknown]
  - Diabetes mellitus [Unknown]
  - Pain [Unknown]
  - Muscle spasms [Unknown]
  - Bradykinesia [Not Recovered/Not Resolved]
  - Memory impairment [Unknown]
  - Dysphonia [Unknown]
  - Tremor [Unknown]
